FAERS Safety Report 4469154-5 (Version None)
Quarter: 2004Q4

REPORT INFORMATION
  Report Type: 
  Country: None (occurrence: None)
  Receive Date: 20041005
  Receipt Date: 20040911
  Transmission Date: 20050328
  Serious: Yes (Hospitalization, Other)
  Sender: FDA-Public Use
  Company Number: 2003143478US

PATIENT
  Sex: Male
  Weight: 120 kg

DRUGS (7)
  1. XANAX [Suspect]
     Indication: PANIC DISORDER
     Dosage: 1 MG, TID
     Dates: start: 20000101
  2. XANAX [Suspect]
     Dosage: 0.25 MG, TID
  3. XANAX [Suspect]
  4. XANAX [Suspect]
     Dosage: 5 MG, BID, ORAL
     Route: 048
     Dates: start: 19990519
  5. XANAX [Suspect]
     Dosage: 1 MG/DAY, ORAL
     Route: 048
  6. XANAX [Suspect]
     Dosage: 0.25 MG, TID, ORAL
     Route: 048
  7. XANAX [Suspect]
     Dosage: 0.25 MG, QID, ORAL
     Route: 048

REACTIONS (32)
  - ABDOMINAL PAIN UPPER [None]
  - ANGER [None]
  - ANXIETY [None]
  - BRONCHITIS [None]
  - CHEST PAIN [None]
  - DEHYDRATION [None]
  - DISCOMFORT [None]
  - DRUG DEPENDENCE [None]
  - DRUG WITHDRAWAL SYNDROME [None]
  - DRY MOUTH [None]
  - DYSPNOEA [None]
  - HEADACHE [None]
  - MASTITIS [None]
  - MENTAL DISORDER [None]
  - MOOD SWINGS [None]
  - MUSCLE SPASMS [None]
  - NASAL CONGESTION [None]
  - NASAL DISCOMFORT [None]
  - NASAL DRYNESS [None]
  - ORAL DISCOMFORT [None]
  - PANIC ATTACK [None]
  - PARAESTHESIA [None]
  - PHARMACEUTICAL PRODUCT COMPLAINT [None]
  - RASH [None]
  - RHINORRHOEA [None]
  - SCAB [None]
  - SINUS CONGESTION [None]
  - SINUSITIS [None]
  - TOOTH DISORDER [None]
  - UPPER RESPIRATORY TRACT INFECTION [None]
  - URTICARIA [None]
  - VITAMIN D DEFICIENCY [None]
